FAERS Safety Report 6920024-X (Version None)
Quarter: 2010Q3

REPORT INFORMATION
  Report Type: 
  Country: None (occurrence: None)
  Receive Date: 20100811
  Receipt Date: 20100805
  Transmission Date: 20110219
  Serious: Yes (Other)
  Sender: FDA-Public Use
  Company Number: CHPA2010US12698

PATIENT
  Sex: Male
  Weight: 87.075 kg

DRUGS (2)
  1. EXCEDRIN (MIGRAINE) [Suspect]
     Indication: MUSCULOSKELETAL PAIN
     Dosage: 2 TABLETS TID AS REQUIRED
     Route: 048
     Dates: start: 20090101, end: 20090101
  2. EXCEDRIN (MIGRAINE) [Suspect]
     Indication: HEADACHE
     Dosage: 4 TABLETS PER DAY IN DIVIDED DOSES
     Route: 048
     Dates: start: 20100802, end: 20100803

REACTIONS (3)
  - BACK PAIN [None]
  - HYPOAESTHESIA [None]
  - RENAL PAIN [None]
